FAERS Safety Report 22646721 (Version 3)
Quarter: 2023Q4

REPORT INFORMATION
  Report Type: Spontaneous
  Country: US (occurrence: US)
  Receive Date: 20230627
  Receipt Date: 20231020
  Transmission Date: 20240109
  Serious: No
  Sender: FDA-Public Use
  Company Number: US-ALXN-A202308364

PATIENT
  Age: 4 Year
  Sex: Female
  Weight: 19.3 kg

DRUGS (2)
  1. STRENSIQ [Suspect]
     Active Substance: ASFOTASE ALFA
     Indication: Hypophosphatasia
     Dosage: UNK, SIX TIMES/WEEK
     Route: 065
     Dates: start: 202105
  2. EPINEPHRINE [Concomitant]
     Active Substance: EPINEPHRINE
     Indication: Product used for unknown indication
     Dosage: 0.15MG/0.3ML, UNK
     Route: 065

REACTIONS (6)
  - Upper respiratory tract infection [Unknown]
  - Abdominal pain [Recovered/Resolved]
  - Pallor [Unknown]
  - Cold sweat [Unknown]
  - Vomiting [Unknown]
  - Hypersensitivity [Unknown]

NARRATIVE: CASE EVENT DATE: 20230522
